FAERS Safety Report 9204531 (Version 1)
Quarter: 2013Q1

REPORT INFORMATION
  Report Type: Spontaneous
  Country: US (occurrence: None)
  Receive Date: 20120709
  Receipt Date: 20120709
  Transmission Date: 20140127
  Serious: Yes (Hospitalization)
  Sender: FDA-Public Use
  Company Number: PHEH2011US009302

PATIENT
  Age: 60 Year
  Sex: Female
  Weight: 95.6 kg

DRUGS (4)
  1. GLEEVEC [Suspect]
     Indication: CHRONIC MYELOID LEUKAEMIA
     Route: 048
     Dates: start: 20080722
  2. LEVOTHYROXINE (LEVOTHYROXINE) [Concomitant]
  3. CLONAZEPAM (CLONAZEPAM) (CLONAZEPAM) [Concomitant]
  4. NILOTINIB (NILOTINIB) [Concomitant]

REACTIONS (2)
  - Myeloid leukaemia [None]
  - Nausea [None]
